FAERS Safety Report 24053749 (Version 1)
Quarter: 2024Q3

REPORT INFORMATION
  Report Type: Spontaneous
  Country: US (occurrence: US)
  Receive Date: 20240705
  Receipt Date: 20240705
  Transmission Date: 20241017
  Serious: Yes (Hospitalization, Other)
  Sender: SERVIER
  Company Number: US-SERVIER-S24007923

PATIENT

DRUGS (11)
  1. ASPARLAS [Suspect]
     Active Substance: CALASPARGASE PEGOL-MKNL
     Indication: Acute lymphocytic leukaemia
     Dosage: 2500 U
     Route: 042
  2. ASPARLAS [Suspect]
     Active Substance: CALASPARGASE PEGOL-MKNL
     Dosage: 3750 U, D4 AND D43
     Route: 042
     Dates: end: 20240604
  3. METHOTREXATE [Concomitant]
     Active Substance: METHOTREXATE
     Indication: Acute lymphocytic leukaemia
     Dosage: 15 MG, D1, D29 AND D36
     Route: 037
  4. DEXAMETHASONE [Concomitant]
     Active Substance: DEXAMETHASONE
     Indication: Acute lymphocytic leukaemia
     Dosage: 5 MG/M2, BID, DAYS 1-7 AND 15-21
     Route: 048
  5. CYCLOPHOSPHAMIDE [Concomitant]
     Active Substance: CYCLOPHOSPHAMIDE
     Indication: Acute lymphocytic leukaemia
     Dosage: 1000 MG/M2, D29
     Route: 042
  6. VINCRISTINE [Concomitant]
     Active Substance: VINCRISTINE
     Indication: Acute lymphocytic leukaemia
     Dosage: 1.5 MG/M2, DAYS 1, 8, 15, 43 AND50
     Route: 042
  7. DOXORUBICIN [Concomitant]
     Active Substance: DOXORUBICIN
     Indication: Acute lymphocytic leukaemia
     Dosage: 25 MG/M2, DAYS 1, 8, 15
     Route: 042
  8. THIOGUANINE [Concomitant]
     Active Substance: THIOGUANINE
     Indication: Acute lymphocytic leukaemia
     Dosage: 60 MG/M2, QD, D29-42
     Route: 065
  9. CYTARABINE [Concomitant]
     Active Substance: CYTARABINE
     Indication: Acute lymphocytic leukaemia
     Dosage: 75 MG/M2, D29-32 AND 36-39
     Route: 042
  10. BENADRYL [Concomitant]
     Active Substance: DIPHENHYDRAMINE HYDROCHLORIDE
     Indication: Premedication
     Dosage: 50 MG, ONE DOSE
     Route: 042
     Dates: start: 20240604, end: 20240604
  11. PEPCID [Concomitant]
     Active Substance: FAMOTIDINE
     Indication: Premedication
     Dosage: UNK
     Route: 042
     Dates: start: 20240604, end: 20240604

REACTIONS (5)
  - Dysarthria [Recovered/Resolved]
  - Facial paralysis [Recovered/Resolved]
  - Feeling abnormal [Recovered/Resolved]
  - Hepatotoxicity [Unknown]
  - Ammonia increased [Unknown]

NARRATIVE: CASE EVENT DATE: 20240101
